FAERS Safety Report 9242546 (Version 1)
Quarter: 2013Q2

REPORT INFORMATION
  Report Type: Spontaneous
  Country: NL (occurrence: NL)
  Receive Date: 20130419
  Receipt Date: 20130419
  Transmission Date: 20140414
  Serious: Yes (Other)
  Sender: FDA-Public Use
  Company Number: NL-JNJFOC-20130406308

PATIENT
  Sex: 0

DRUGS (1)
  1. HALOPERIDOL [Suspect]
     Indication: PROPHYLAXIS
     Route: 065

REACTIONS (2)
  - Electrocardiogram QT prolonged [Unknown]
  - Nervous system disorder [Unknown]
